FAERS Safety Report 16186030 (Version 1)
Quarter: 2019Q2

REPORT INFORMATION
  Report Type: Spontaneous
  Country: US (occurrence: US)
  Receive Date: 20190308
  Receipt Date: 20190308
  Transmission Date: 20190711
  Serious: Yes (Death)
  Sender: FDA-Public Use
  Company Number: None

PATIENT
  Age: 76 Year
  Sex: Male
  Weight: 90.72 kg

DRUGS (2)
  1. XARELTO [Suspect]
     Active Substance: RIVAROXABAN
  2. XARELTO [Suspect]
     Active Substance: RIVAROXABAN
     Dates: start: 20141003, end: 20141101

REACTIONS (2)
  - Dizziness [None]
  - Haemorrhage [None]

NARRATIVE: CASE EVENT DATE: 20141101
